FAERS Safety Report 20785152 (Version 2)
Quarter: 2022Q2

REPORT INFORMATION
  Report Type: Spontaneous
  Country: US (occurrence: US)
  Receive Date: 20220504
  Receipt Date: 20220518
  Transmission Date: 20220721
  Serious: No
  Sender: FDA-Public Use
  Company Number: US-NOVARTISTESTPH-NVSC2022US102416

PATIENT
  Age: 54 Year
  Sex: Female

DRUGS (1)
  1. PIQRAY [Suspect]
     Active Substance: ALPELISIB
     Indication: HER2 negative breast cancer
     Dosage: 300 MG, QID (CAPSULE)
     Route: 048
     Dates: start: 20220401

REACTIONS (1)
  - Hyperglycaemia [Not Recovered/Not Resolved]
